FAERS Safety Report 21394268 (Version 1)
Quarter: 2022Q3

REPORT INFORMATION
  Report Type: Spontaneous
  Country: DE (occurrence: DE)
  Receive Date: 20220930
  Receipt Date: 20220930
  Transmission Date: 20221026
  Serious: Yes (Hospitalization)
  Sender: FDA-Public Use
  Company Number: DE-NOVARTISPH-NVSC2022DE215669

PATIENT
  Age: 76 Year
  Sex: Male
  Weight: 70 kg

DRUGS (2)
  1. TRAMETINIB [Suspect]
     Active Substance: TRAMETINIB
     Indication: Product used for unknown indication
     Dosage: 2 MG, QD (1-0-0-0)
     Route: 065
  2. DABRAFENIB [Suspect]
     Active Substance: DABRAFENIB
     Indication: Product used for unknown indication
     Dosage: 75 MG, BID (2-0-2-0)
     Route: 065

REACTIONS (10)
  - Chest pain [Unknown]
  - Condition aggravated [Unknown]
  - Tachypnoea [Unknown]
  - General physical health deterioration [Unknown]
  - Hypotension [Unknown]
  - Systemic infection [Unknown]
  - Renal impairment [Unknown]
  - Anaemia [Unknown]
  - Pyrexia [Unknown]
  - Cough [Unknown]
